FAERS Safety Report 18412676 (Version 3)
Quarter: 2021Q2

REPORT INFORMATION
  Report Type: Spontaneous
  Country: US (occurrence: US)
  Receive Date: 20201021
  Receipt Date: 20210611
  Transmission Date: 20210717
  Serious: No
  Sender: FDA-Public Use
  Company Number: US-PFIZER INC-2020010822

PATIENT
  Age: 72 Year
  Sex: Male

DRUGS (5)
  1. BRAFTOVI [Suspect]
     Active Substance: ENCORAFENIB
     Dosage: 450 MG
  2. BRAFTOVI [Suspect]
     Active Substance: ENCORAFENIB
     Indication: HAEMOGLOBIN ABNORMAL
     Dosage: UNK
     Dates: start: 201907
  3. MEKTOVI [Suspect]
     Active Substance: BINIMETINIB
     Dosage: 45 MG
  4. BRAFTOVI [Suspect]
     Active Substance: ENCORAFENIB
     Dosage: 300 MG
  5. MEKTOVI [Suspect]
     Active Substance: BINIMETINIB
     Indication: HAEMOGLOBIN ABNORMAL
     Dosage: UNK
     Dates: start: 201907

REACTIONS (3)
  - Product prescribing issue [Unknown]
  - Off label use [Unknown]
  - Confusional state [Unknown]
